FAERS Safety Report 5327322-4 (Version None)
Quarter: 2007Q2

REPORT INFORMATION
  Report Type: 
  Country: None (occurrence: None)
  Receive Date: 20070511
  Receipt Date: 20070501
  Transmission Date: 20071010
  Serious: Yes (Hospitalization)
  Sender: FDA-Public Use
  Company Number: 163-21880-07050185

PATIENT
  Age: 62 Year
  Sex: Female

DRUGS (4)
  1. REVLIMID [Suspect]
     Indication: LYMPHOMA
     Dosage: SEE IMAGE
     Route: 048
     Dates: start: 20061121, end: 20061209
  2. REVLIMID [Suspect]
     Indication: LYMPHOMA
     Dosage: SEE IMAGE
     Route: 048
     Dates: start: 20061213, end: 20061221
  3. REVLIMID [Suspect]
     Indication: LYMPHOMA
     Dosage: SEE IMAGE
     Route: 048
     Dates: start: 20070211, end: 20070325
  4. REVLIMID [Suspect]
     Indication: LYMPHOMA
     Dosage: SEE IMAGE
     Route: 048
     Dates: start: 20070503

REACTIONS (5)
  - DEEP VEIN THROMBOSIS [None]
  - DIARRHOEA [None]
  - HERNIA [None]
  - PERITONEAL INFECTION [None]
  - WHITE BLOOD CELL COUNT DECREASED [None]
